FAERS Safety Report 16162166 (Version 11)
Quarter: 2022Q3

REPORT INFORMATION
  Report Type: Report from Study
  Country: JP (occurrence: JP)
  Receive Date: 20190405
  Receipt Date: 20220802
  Transmission Date: 20221027
  Serious: Yes (Hospitalization, Other)
  Sender: FDA-Public Use
  Company Number: JP-ONO-2019JP011617

PATIENT
  Age: 78 Year
  Sex: Male
  Weight: 52 kg

DRUGS (8)
  1. ETELCALCETIDE [Suspect]
     Active Substance: ETELCALCETIDE
     Indication: Hyperparathyroidism secondary
     Dosage: 5 MILLIGRAM, 3 TIMES/WK
     Route: 010
     Dates: start: 20181225, end: 20190115
  2. DARBEPOETIN ALFA [Concomitant]
     Active Substance: DARBEPOETIN ALFA
     Dosage: 10 MICROGRAM, QWK
     Route: 065
  3. MAXACALCITOL [Concomitant]
     Active Substance: MAXACALCITOL
     Dosage: 2.5 MICROGRAM, 3 TIMES/WK
     Route: 010
  4. AMLODIPINE [Concomitant]
     Active Substance: AMLODIPINE BESYLATE
     Indication: Hypertension
     Dosage: 5 MILLIGRAM
     Route: 048
  5. FEBUXOSTAT [Concomitant]
     Active Substance: FEBUXOSTAT
     Indication: Hyperuricaemia
     Dosage: 10 MILLIGRAM
     Route: 048
  6. TAMSULOSIN HYDROCHLORIDE [Concomitant]
     Active Substance: TAMSULOSIN HYDROCHLORIDE
     Indication: Benign prostatic hyperplasia
     Dosage: 0.2 MILLIGRAM
     Route: 048
  7. FOSRENOL [Concomitant]
     Active Substance: LANTHANUM CARBONATE
     Dosage: 750 MILLIGRAM, QD
     Route: 048
  8. CLOPIDOGREL [Concomitant]
     Active Substance: CLOPIDOGREL BISULFATE
     Dosage: 75 MILLIGRAM
     Route: 048

REACTIONS (1)
  - Cardiac failure [Recovered/Resolved]

NARRATIVE: CASE EVENT DATE: 20190108
